FAERS Safety Report 6953252-8 (Version None)
Quarter: 2010Q3

REPORT INFORMATION
  Report Type: 
  Country: None (occurrence: None)
  Receive Date: 20100829
  Receipt Date: 20100601
  Transmission Date: 20110219
  Serious: No
  Sender: FDA-Public Use
  Company Number: US-ABBOTT-10P-163-0649296-00

PATIENT
  Sex: Female
  Weight: 53.118 kg

DRUGS (6)
  1. NIASPAN [Suspect]
     Indication: BLOOD CHOLESTEROL INCREASED
     Dates: start: 20100201, end: 20100301
  2. NIASPAN [Suspect]
     Indication: LOW DENSITY LIPOPROTEIN INCREASED
     Dates: start: 20100301
  3. NIASPAN [Suspect]
     Indication: CAROTID ARTERY OCCLUSION
  4. ATENOLOL [Concomitant]
     Indication: HYPERTENSION
  5. SIMVASTATIN [Concomitant]
     Indication: BLOOD CHOLESTEROL INCREASED
  6. AMOXICILLIN [Concomitant]
     Indication: DENTAL IMPLANTATION
     Dates: start: 20100501

REACTIONS (2)
  - FLUSHING [None]
  - PRURITUS [None]
